FAERS Safety Report 12335149 (Version 1)
Quarter: 2016Q2

REPORT INFORMATION
  Report Type: Spontaneous
  Country: KR (occurrence: KR)
  Receive Date: 20160504
  Receipt Date: 20160504
  Transmission Date: 20160815
  Serious: No
  Sender: FDA-Public Use
  Company Number: KR-EMERGENT BIOSOLUTIONS-15WR00048SP

PATIENT

DRUGS (1)
  1. WINRHO SDF [Suspect]
     Active Substance: HUMAN RHO(D) IMMUNE GLOBULIN
     Dosage: UNK
     Dates: start: 20151123, end: 20151123

REACTIONS (1)
  - Product preparation error [Recovered/Resolved]

NARRATIVE: CASE EVENT DATE: 20151123
